FAERS Safety Report 6303966-8 (Version None)
Quarter: 2009Q3

REPORT INFORMATION
  Report Type: 
  Country: None (occurrence: None)
  Receive Date: 20090810
  Receipt Date: 20090729
  Transmission Date: 20100115
  Serious: Yes (Life-Threatening, Hospitalization, Other)
  Sender: FDA-Public Use
  Company Number: US-PFIZER INC-2008062775

PATIENT
  Sex: Male

DRUGS (2)
  1. CHANTIX [Suspect]
     Dates: start: 20080328, end: 20080422
  2. AMBIEN [Suspect]
     Dosage: UNK

REACTIONS (11)
  - AFFECTIVE DISORDER [None]
  - ANXIETY [None]
  - BLOOD TEST ABNORMAL [None]
  - CONSTIPATION [None]
  - DEPRESSION [None]
  - INSOMNIA [None]
  - INTENTIONAL OVERDOSE [None]
  - PARAESTHESIA [None]
  - PERIPHERAL ISCHAEMIA [None]
  - SUICIDE ATTEMPT [None]
  - TINEA PEDIS [None]
